FAERS Safety Report 8590079-8 (Version None)
Quarter: 2012Q3

REPORT INFORMATION
  Report Type: 
  Country: None (occurrence: None)
  Receive Date: 20120813
  Receipt Date: 20120802
  Transmission Date: 20120928
  Serious: Yes (Other)
  Sender: FDA-Public Use
  Company Number: ES-JNJFOC-20120802917

PATIENT
  Sex: Male

DRUGS (7)
  1. AKINETON [Concomitant]
     Indication: PRODUCT USED FOR UNKNOWN INDICATION
     Route: 065
  2. PALIPERIDONE [Suspect]
     Route: 030
  3. TOPAMAX [Suspect]
     Indication: PRODUCT USED FOR UNKNOWN INDICATION
     Route: 048
     Dates: end: 20110101
  4. TOPAMAX [Suspect]
     Route: 048
     Dates: start: 20110101
  5. LYRICA [Concomitant]
     Indication: PRODUCT USED FOR UNKNOWN INDICATION
     Route: 065
  6. PALIPERIDONE [Suspect]
     Indication: PSYCHOTIC DISORDER
     Route: 030
  7. CITALOPRAM [Concomitant]
     Indication: PRODUCT USED FOR UNKNOWN INDICATION
     Route: 065

REACTIONS (9)
  - FATIGUE [None]
  - OCULOGYRIC CRISIS [None]
  - HEADACHE [None]
  - DYSKINESIA [None]
  - MUSCLE RIGIDITY [None]
  - INSOMNIA [None]
  - SLUGGISHNESS [None]
  - ANXIETY [None]
  - AMNESIA [None]
